FAERS Safety Report 21918306 (Version 1)
Quarter: 2023Q1

REPORT INFORMATION
  Report Type: Spontaneous
  Country: JP (occurrence: JP)
  Receive Date: 20230127
  Receipt Date: 20230127
  Transmission Date: 20230417
  Serious: Yes (Death)
  Sender: FDA-Public Use
  Company Number: JP-ABBVIE-4284844

PATIENT

DRUGS (1)
  1. SKYRIZI [Suspect]
     Active Substance: RISANKIZUMAB-RZAA
     Indication: Product used for unknown indication
     Route: 058

REACTIONS (7)
  - Neoplasm malignant [Fatal]
  - Mental disorder [Unknown]
  - Urticaria [Unknown]
  - Dyshidrotic eczema [Unknown]
  - Arthropathy [Unknown]
  - Drug ineffective [Unknown]
  - Seborrhoeic dermatitis [Unknown]
